FAERS Safety Report 8820577 (Version 1)
Quarter: 2012Q4

REPORT INFORMATION
  Report Type: 
  Country: DE (occurrence: DE)
  Receive Date: 20121002
  Receipt Date: 20121002
  Transmission Date: 20130627
  Serious: Yes (Hospitalization, Other)
  Sender: FDA-Public Use
  Company Number: DE-PFIZER INC-2012241633

PATIENT
  Age: 56 Year
  Sex: Female
  Weight: 62 kg

DRUGS (6)
  1. PANTOPRAZOLE [Suspect]
     Indication: HELICOBACTER INFECTION
     Dosage: 40 mg, 2x/day
     Route: 065
     Dates: start: 20120904, end: 20120911
  2. AMOXICILLIN [Suspect]
     Indication: HELICOBACTER INFECTION
     Dosage: 1000 mg, 2x/day
     Route: 065
     Dates: start: 20120904, end: 20120911
  3. CLARITHROMYCIN [Suspect]
     Indication: HELICOBACTER INFECTION
     Dosage: 500 mg, 2x/day
     Dates: start: 20120904, end: 20120911
  4. SIMVASTATIN [Concomitant]
     Indication: DRUG THERAPY
     Dosage: 20 mg, UNK
  5. RAMIPRIL [Concomitant]
     Indication: BLOOD PRESSURE MANAGEMENT
     Dosage: 1.25 mg, UNK
  6. HCT [Concomitant]
     Indication: BLOOD PRESSURE MANAGEMENT
     Dosage: 6.25 mg, UNK

REACTIONS (3)
  - Rhabdomyolysis [Not Recovered/Not Resolved]
  - Muscular weakness [Not Recovered/Not Resolved]
  - Myalgia [Not Recovered/Not Resolved]
